FAERS Safety Report 8244749-1 (Version None)
Quarter: 2012Q1

REPORT INFORMATION
  Report Type: 
  Country: None (occurrence: None)
  Receive Date: 20120329
  Receipt Date: 20110315
  Transmission Date: 20120608
  Serious: No
  Sender: FDA-Public Use
  Company Number: US-MYLANLABS-2011S1005676

PATIENT
  Age: 49 Year
  Sex: Male
  Weight: 104.33 kg

DRUGS (2)
  1. PERCOCET [Concomitant]
     Indication: BACK PAIN
     Dosage: 5MG/325MG
     Route: 048
  2. FENTANYL-100 [Suspect]
     Indication: BACK PAIN
     Dosage: CHANGED Q 72 HOURS.
     Route: 062
     Dates: start: 20101201

REACTIONS (3)
  - DRUG WITHDRAWAL SYNDROME [None]
  - BACK PAIN [None]
  - DRUG INEFFECTIVE [None]
